FAERS Safety Report 20721605 (Version 1)
Quarter: 2022Q2

REPORT INFORMATION
  Report Type: Spontaneous
  Country: CA (occurrence: CA)
  Receive Date: 20220418
  Receipt Date: 20220418
  Transmission Date: 20220721
  Serious: Yes (Other)
  Sender: FDA-Public Use
  Company Number: CA-SA-SAC20220415000290

PATIENT
  Age: 46 Year
  Sex: Male

DRUGS (6)
  1. ANTI-THYMOCYTE GLOBULIN (RABBIT) NOS [Suspect]
     Active Substance: LAPINE T-LYMPHOCYTE IMMUNE GLOBULIN
     Indication: Autologous haematopoietic stem cell transplant
     Dosage: 1.25 MG/KG, QD
     Route: 042
  2. ANTI-THYMOCYTE GLOBULIN (RABBIT) NOS [Suspect]
     Active Substance: LAPINE T-LYMPHOCYTE IMMUNE GLOBULIN
     Indication: Bone marrow conditioning regimen
  3. CYCLOPHOSPHAMIDE [Suspect]
     Active Substance: CYCLOPHOSPHAMIDE
     Indication: Autologous haematopoietic stem cell transplant
     Dosage: 50 MG/KG, QD
     Route: 042
  4. CYCLOPHOSPHAMIDE [Suspect]
     Active Substance: CYCLOPHOSPHAMIDE
     Indication: Bone marrow conditioning regimen
  5. BUSULFAN [Suspect]
     Active Substance: BUSULFAN
     Indication: Autologous haematopoietic stem cell transplant
     Dosage: 2.4 MG/KG, QD
     Route: 042
  6. BUSULFAN [Suspect]
     Active Substance: BUSULFAN
     Indication: Bone marrow conditioning regimen

REACTIONS (6)
  - Neutropenic colitis [Unknown]
  - Mucosal inflammation [Unknown]
  - Bacteraemia [Unknown]
  - Escherichia test positive [Unknown]
  - Febrile neutropenia [Unknown]
  - Cytomegalovirus test positive [Unknown]
